FAERS Safety Report 6636686-0 (Version None)
Quarter: 2010Q1

REPORT INFORMATION
  Report Type: 
  Country: None (occurrence: None)
  Receive Date: 20100316
  Receipt Date: 20100308
  Transmission Date: 20100710
  Serious: Yes (Death)
  Sender: FDA-Public Use
  Company Number: A0850117A

PATIENT
  Sex: Female

DRUGS (1)
  1. AVANDIA [Suspect]
     Route: 048
     Dates: start: 20020101, end: 20080101

REACTIONS (1)
  - MYOCARDIAL INFARCTION [None]
